FAERS Safety Report 7571338-4 (Version None)
Quarter: 2011Q2

REPORT INFORMATION
  Report Type: 
  Country: None (occurrence: None)
  Receive Date: 20110624
  Receipt Date: 20110614
  Transmission Date: 20111010
  Serious: Yes (Other)
  Sender: FDA-Public Use
  Company Number: B0726110A

PATIENT
  Sex: Male

DRUGS (5)
  1. ONDANSERTRON HYDROCHLORIDE [Suspect]
     Indication: PREMEDICATION
     Route: 042
  2. METHYLPREDNISOLONE [Suspect]
     Indication: PREMEDICATION
     Dosage: 120MG CYCLIC
     Route: 042
  3. NAVELBINE [Suspect]
     Indication: LUNG NEOPLASM MALIGNANT
     Route: 042
  4. EMEND [Suspect]
     Indication: PREMEDICATION
     Route: 042
  5. CISPLATIN [Suspect]
     Indication: LUNG NEOPLASM MALIGNANT
     Route: 042

REACTIONS (2)
  - VISUAL ACUITY REDUCED [None]
  - PAPILLOEDEMA [None]
